FAERS Safety Report 14699959 (Version 1)
Quarter: 2018Q1

REPORT INFORMATION
  Report Type: Spontaneous
  Country: US (occurrence: US)
  Receive Date: 20180329
  Receipt Date: 20180329
  Transmission Date: 20180509
  Serious: No
  Sender: FDA-Public Use
  Company Number: None

PATIENT
  Age: 82 Year
  Sex: Female
  Weight: 82.35 kg

DRUGS (1)
  1. CLINDAMYCIN PHOSPHATE TOPICAL SOLUTION USP, 1% [Suspect]
     Active Substance: CLINDAMYCIN PHOSPHATE
     Indication: SKIN DISORDER
     Dosage: QUANTITY:1 60 ML BOTTLE;?
     Route: 061
     Dates: start: 20171214, end: 20180328

REACTIONS (5)
  - Product quality issue [None]
  - Device occlusion [None]
  - Device issue [None]
  - Accidental exposure to product [None]
  - Device defective [None]

NARRATIVE: CASE EVENT DATE: 20180328
